FAERS Safety Report 17673370 (Version 2)
Quarter: 2020Q2

REPORT INFORMATION
  Report Type: Spontaneous
  Country: US (occurrence: US)
  Receive Date: 20200415
  Receipt Date: 20200429
  Transmission Date: 20200713
  Serious: Yes (Life-Threatening, Hospitalization)
  Sender: FDA-Public Use
  Company Number: US-TEVA-2020-US-1222471

PATIENT
  Age: 64 Year
  Sex: Female

DRUGS (2)
  1. LEVOTHYROXINE. [Suspect]
     Active Substance: LEVOTHYROXINE
     Dosage: INGESTED UNSPECIFIED AMOUNT OF PILLS
     Route: 048
  2. AMLODIPINE [Suspect]
     Active Substance: AMLODIPINE BESYLATE
     Dosage: INGESTED UNSPECIFIED AMOUNT OF PILLS
     Route: 048

REACTIONS (9)
  - Liver injury [Unknown]
  - Metabolic acidosis [Unknown]
  - Shock [Recovering/Resolving]
  - Rhabdomyolysis [Unknown]
  - Overdose [Unknown]
  - Toxicity to various agents [Recovering/Resolving]
  - Leukocytosis [Unknown]
  - Acute kidney injury [Unknown]
  - Hypotension [Recovering/Resolving]
